FAERS Safety Report 5213029-0 (Version None)
Quarter: 2007Q1

REPORT INFORMATION
  Report Type: 
  Country: None (occurrence: None)
  Receive Date: 20070117
  Receipt Date: 20070117
  Transmission Date: 20070707
  Serious: No
  Sender: FDA-Public Use
  Company Number: None

PATIENT
  Age: 77 Year
  Sex: Female
  Weight: 52.1637 kg

DRUGS (1)
  1. SIMVASTATIN [Suspect]
     Indication: CAROTID ARTERY STENOSIS
     Dosage: 80 MG DIALY PO
     Route: 048
     Dates: start: 20060824, end: 20061111

REACTIONS (1)
  - RHABDOMYOLYSIS [None]
